FAERS Safety Report 5643635-0 (Version None)
Quarter: 2008Q1

REPORT INFORMATION
  Report Type: 
  Country: None (occurrence: None)
  Receive Date: 20080228
  Receipt Date: 20080212
  Transmission Date: 20080703
  Serious: Yes (Other)
  Sender: FDA-Public Use
  Company Number: FR-PFIZER INC-2007106035

PATIENT
  Sex: Female
  Weight: 62 kg

DRUGS (5)
  1. TAHOR [Suspect]
     Indication: LOW DENSITY LIPOPROTEIN INCREASED
     Route: 048
  2. ALL OTHER THERAPEUTIC PRODUCTS [Concomitant]
  3. ANAFRANIL [Concomitant]
     Indication: DEPRESSIVE SYMPTOM
     Dosage: DAILY DOSE:75MG-FREQ:DAILY
     Route: 048
  4. LAROXYL [Concomitant]
     Indication: DEPRESSIVE SYMPTOM
     Dosage: DAILY DOSE:75MG-FREQ:DAILY
     Route: 048
     Dates: start: 20060101
  5. TERCIAN [Concomitant]
     Indication: DEPRESSIVE SYMPTOM
     Dosage: DAILY DOSE:25MG-FREQ:DAILY
     Route: 048
     Dates: start: 20060101

REACTIONS (1)
  - TRANSIENT ISCHAEMIC ATTACK [None]
